FAERS Safety Report 4854483-3 (Version None)
Quarter: 2005Q4

REPORT INFORMATION
  Report Type: 
  Country: None (occurrence: None)
  Receive Date: 20051213
  Receipt Date: 20051130
  Transmission Date: 20060501
  Serious: Yes (Hospitalization)
  Sender: FDA-Public Use
  Company Number: 2005159730

PATIENT
  Age: 3 Year
  Sex: Male

DRUGS (2)
  1. DIFLUCAN [Suspect]
     Indication: PNEUMONIA FUNGAL
     Dosage: INTRAVENOUS
     Route: 042
     Dates: start: 20050318
  2. TRETINOIN [Concomitant]

REACTIONS (2)
  - HYPERCALCAEMIA [None]
  - RENAL FAILURE [None]
